FAERS Safety Report 8089636-7 (Version None)
Quarter: 2012Q1

REPORT INFORMATION
  Report Type: 
  Country: None (occurrence: None)
  Receive Date: 20120128
  Receipt Date: 20110819
  Transmission Date: 20120608
  Serious: No
  Sender: FDA-Public Use
  Company Number: US-ABBOTT-11P-163-0726770-00

PATIENT
  Age: 69 Year
  Sex: Male

DRUGS (13)
  1. HUMIRA [Suspect]
     Indication: COLITIS ULCERATIVE
     Dates: start: 20100701
  2. UNKNOWN MEDICATION [Concomitant]
     Indication: BLOOD PRESSURE
  3. EXFORGE [Concomitant]
     Indication: BLOOD PRESSURE
     Dosage: 160 MG QD
  4. ASPIRIN [Concomitant]
     Indication: PRODUCT USED FOR UNKNOWN INDICATION
  5. ENTOCORT EC [Concomitant]
     Indication: PRODUCT USED FOR UNKNOWN INDICATION
     Dosage: 2 TAB QD
  6. MULTI-VITAMIN [Concomitant]
     Indication: PRODUCT USED FOR UNKNOWN INDICATION
  7. POTASSIUM [Concomitant]
     Indication: PRODUCT USED FOR UNKNOWN INDICATION
  8. PREDNISONE TAB [Concomitant]
     Indication: PRODUCT USED FOR UNKNOWN INDICATION
     Dates: end: 20110301
  9. LOMOTIL [Concomitant]
     Indication: PRODUCT USED FOR UNKNOWN INDICATION
     Dosage: PRN
  10. ALLOPURINOL [Concomitant]
     Indication: BLOOD URIC ACID
  11. PROBIOTIC DSL #3 [Concomitant]
     Indication: PRODUCT USED FOR UNKNOWN INDICATION
  12. VSL#3 DS [Concomitant]
     Indication: PRODUCT USED FOR UNKNOWN INDICATION
     Dosage: QD
  13. LASIX [Concomitant]
     Indication: BLOOD PRESSURE
     Dosage: QD

REACTIONS (4)
  - INJECTION SITE HAEMATOMA [None]
  - WOUND HAEMORRHAGE [None]
  - INCREASED TENDENCY TO BRUISE [None]
  - CONTUSION [None]
